FAERS Safety Report 7668952-4 (Version None)
Quarter: 2011Q3

REPORT INFORMATION
  Report Type: 
  Country: None (occurrence: None)
  Receive Date: 20110808
  Receipt Date: 20110727
  Transmission Date: 20111222
  Serious: Yes (Other)
  Sender: FDA-Public Use
  Company Number: US-GLAXOSMITHKLINE-A0939801A

PATIENT
  Age: 69 Year
  Sex: Male
  Weight: 113.6 kg

DRUGS (15)
  1. KETOCONAZOLE [Suspect]
     Indication: PROSTATE CANCER
     Dosage: 400MG THREE TIMES PER DAY
     Route: 048
     Dates: start: 20110601
  2. DIOVAN [Concomitant]
  3. DUTASTERIDE [Suspect]
     Indication: PROSTATE CANCER
     Dosage: .5MG PER DAY
     Route: 048
     Dates: start: 20110601
  4. AGGRENOX [Concomitant]
  5. ASPIRIN [Concomitant]
  6. HYDROMORPHONE HCL [Concomitant]
  7. LAPATINIB [Suspect]
     Indication: PROSTATE CANCER
     Dosage: 500MG PER DAY
     Route: 048
     Dates: start: 20110701
  8. EFFEXOR [Concomitant]
  9. LUPRON DEPOT [Concomitant]
  10. HYDROCORTISONE [Suspect]
     Dosage: 10MG AT NIGHT
     Route: 048
  11. AMLODIPINE [Concomitant]
  12. HYDROCORTISONE [Suspect]
     Indication: PROSTATE CANCER
     Dosage: 30MG IN THE MORNING
     Route: 048
  13. CEREFOLIN WITH NAC [Concomitant]
  14. FENOFIBRATE [Concomitant]
  15. HYDROCHLOROTHIAZIDE [Concomitant]

REACTIONS (2)
  - CONDUCTION DISORDER [None]
  - ELECTROCARDIOGRAM QT PROLONGED [None]
